FAERS Safety Report 7867461-7 (Version None)
Quarter: 2011Q4

REPORT INFORMATION
  Report Type: 
  Country: None (occurrence: None)
  Receive Date: 20111028
  Receipt Date: 20111024
  Transmission Date: 20120403
  Serious: Yes (Other)
  Sender: FDA-Public Use
  Company Number: HR-BAYER-2011-016298

PATIENT
  Sex: Female

DRUGS (2)
  1. YAZ [Suspect]
     Indication: POLYCYSTIC OVARIES
     Dosage: UNK
     Route: 048
     Dates: start: 20101101, end: 20110201
  2. YASMIN 0,03 MG/3 MG FILM COATED TABLETS [Suspect]
     Indication: POLYCYSTIC OVARIES
     Dosage: UNK
     Dates: start: 20080101

REACTIONS (5)
  - BLINDNESS [None]
  - HYPOAESTHESIA [None]
  - MULTIPLE SCLEROSIS [None]
  - AMNESIA [None]
  - HYPOAESTHESIA ORAL [None]
